FAERS Safety Report 16347178 (Version 1)
Quarter: 2019Q2

REPORT INFORMATION
  Report Type: Spontaneous
  Country: JO (occurrence: JO)
  Receive Date: 20190523
  Receipt Date: 20190523
  Transmission Date: 20190711
  Serious: Yes (Life-Threatening, Hospitalization)
  Sender: FDA-Public Use
  Company Number: JO-AMREGENT-20180897

PATIENT
  Age: 49 Year
  Sex: Female
  Weight: 89 kg

DRUGS (4)
  1. SUPRAX [Concomitant]
     Active Substance: CEFIXIME
     Dosage: 400 MG
     Route: 048
     Dates: start: 20180506
  2. FERINJECT [Suspect]
     Active Substance: FERRIC CARBOXYMALTOSE
     Dosage: 500 MG ONCE
     Route: 042
     Dates: start: 20180503, end: 20180503
  3. HIBOR (BEMIPARIN SODIUM) [Suspect]
     Active Substance: BEMIPARIN SODIUM
     Dosage: 3 DOSES (3500 IU, 1 IN 1 D)
     Route: 058
     Dates: start: 20180504, end: 20180506
  4. PROXEN [Concomitant]
     Dosage: 500 MG
     Route: 065
     Dates: start: 20180506

REACTIONS (2)
  - Pulmonary embolism [Not Recovered/Not Resolved]
  - Haemorrhage [Unknown]

NARRATIVE: CASE EVENT DATE: 20180506
